FAERS Safety Report 4997784-0 (Version None)
Quarter: 2006Q2

REPORT INFORMATION
  Report Type: 
  Country: None (occurrence: None)
  Receive Date: 20060510
  Receipt Date: 20060502
  Transmission Date: 20061013
  Serious: Yes (Other)
  Sender: FDA-Public Use
  Company Number: GB-ABBOTT-06P-167-0332301-00

PATIENT
  Age: 3 Year
  Sex: Female
  Weight: 13 kg

DRUGS (1)
  1. ERYTHROMYCIN ETHYLSUCCINATE ORAL SUSPENSION [Suspect]
     Indication: PHARYNGITIS
     Route: 048

REACTIONS (2)
  - DYSPHEMIA [None]
  - FATIGUE [None]
